FAERS Safety Report 18722925 (Version 1)
Quarter: 2021Q1

REPORT INFORMATION
  Report Type: Spontaneous
  Country: CA (occurrence: CA)
  Receive Date: 20210111
  Receipt Date: 20210111
  Transmission Date: 20210419
  Serious: Yes (Hospitalization)
  Sender: FDA-Public Use
  Company Number: CA-ROCHE-2744347

PATIENT
  Age: 72 Year
  Sex: Male
  Weight: 52 kg

DRUGS (6)
  1. FLUOROURACIL. [Concomitant]
     Active Substance: FLUOROURACIL
     Indication: OESOPHAGEAL CARCINOMA
     Route: 065
  2. GRAVOL [Concomitant]
     Active Substance: DIMENHYDRINATE
     Route: 048
  3. TRASTUZUMAB. [Suspect]
     Active Substance: TRASTUZUMAB
     Indication: OESOPHAGEAL CANCER METASTATIC
     Dosage: 1.0 DAYS
     Route: 042
  4. ACETAMINOPHEN. [Concomitant]
     Active Substance: ACETAMINOPHEN
     Route: 048
  5. ACETAMINOPHEN. [Concomitant]
     Active Substance: ACETAMINOPHEN
     Route: 048
  6. DIPHENHYDRAMINE. [Concomitant]
     Active Substance: DIPHENHYDRAMINE
     Route: 048

REACTIONS (7)
  - Heart rate decreased [Recovered/Resolved]
  - Heart rate increased [Recovered/Resolved]
  - Hypercalcaemia [Recovered/Resolved]
  - Weight decreased [Recovered/Resolved]
  - Weight increased [Recovered/Resolved]
  - Decreased appetite [Recovered/Resolved]
  - Oxygen saturation decreased [Recovered/Resolved]
